FAERS Safety Report 9433190 (Version 2)
Quarter: 2013Q3

REPORT INFORMATION
  Report Type: Report from Study
  Country: NL (occurrence: NL)
  Receive Date: 20130731
  Receipt Date: 20130913
  Transmission Date: 20140515
  Serious: Yes (Other)
  Sender: FDA-Public Use
  Company Number: NL-BAXTER-2013BAX029363

PATIENT
  Sex: Female

DRUGS (3)
  1. KIOVIG, 100 MG/ML, OPLOSSING VOOR INFUSIE (30 G/300 ML) [Suspect]
     Indication: MULTIPLE SCLEROSIS
     Route: 065
     Dates: start: 20110411, end: 20110411
  2. KIOVIG, 100 MG/ML, OPLOSSING VOOR INFUSIE (30 G/300 ML) [Suspect]
     Indication: OFF LABEL USE
     Route: 065
     Dates: start: 20130603, end: 20130603
  3. KIOVIG, 100 MG/ML, OPLOSSING VOOR INFUSIE (30 G/300 ML) [Suspect]
     Route: 065
     Dates: start: 20130701, end: 20130701

REACTIONS (1)
  - Drug effect incomplete [Not Recovered/Not Resolved]
